FAERS Safety Report 15456217 (Version 1)
Quarter: 2018Q3

REPORT INFORMATION
  Report Type: Spontaneous
  Country: US (occurrence: US)
  Receive Date: 20180928
  Receipt Date: 20180928
  Transmission Date: 20181010
  Serious: Yes (Other)
  Sender: FDA-Public Use
  Company Number: None

PATIENT
  Age: 56 Year
  Sex: Female

DRUGS (13)
  1. ATORVASTATIN [Concomitant]
     Active Substance: ATORVASTATIN
  2. VOLTAREN [Concomitant]
     Active Substance: DICLOFENAC SODIUM
  3. TRULICITY [Suspect]
     Active Substance: DULAGLUTIDE
     Indication: TYPE 2 DIABETES MELLITUS
     Dates: start: 20180828, end: 20180904
  4. JANUVIA [Concomitant]
     Active Substance: SITAGLIPTIN PHOSPHATE
  5. METATOPROL [Concomitant]
  6. METFORMIN [Concomitant]
     Active Substance: METFORMIN HYDROCHLORIDE
  7. TYLENOL [Concomitant]
     Active Substance: ACETAMINOPHEN
  8. VITAMIN D [Concomitant]
     Active Substance: CHOLECALCIFEROL
  9. MAGNESIUM [Concomitant]
     Active Substance: MAGNESIUM
  10. LOSARTAN. [Concomitant]
     Active Substance: LOSARTAN
  11. PRILOSEC [Concomitant]
     Active Substance: OMEPRAZOLE MAGNESIUM
  12. ADVIL [Concomitant]
     Active Substance: IBUPROFEN
  13. BASALGLAR [Concomitant]

REACTIONS (6)
  - Nausea [None]
  - Diarrhoea [None]
  - Negative thoughts [None]
  - Anxiety [None]
  - Panic attack [None]
  - Decreased appetite [None]

NARRATIVE: CASE EVENT DATE: 20180828
